FAERS Safety Report 12654169 (Version 2)
Quarter: 2016Q3

REPORT INFORMATION
  Report Type: Spontaneous
  Country: DE (occurrence: DE)
  Receive Date: 20160816
  Receipt Date: 20160928
  Transmission Date: 20161109
  Serious: Yes (Other)
  Sender: FDA-Public Use
  Company Number: DE-JNJFOC-20160806518

PATIENT
  Age: 67 Year
  Sex: Female
  Weight: 90 kg

DRUGS (4)
  1. METFORMIN [Concomitant]
     Active Substance: METFORMIN HYDROCHLORIDE
     Indication: DIABETES MELLITUS
     Dosage: DOSE: 500 (UNITS UNSPECIFIED) ONCE AT NIGHT
     Dates: start: 2011
  2. URSOFALK [Concomitant]
     Active Substance: URSODIOL
     Dosage: DOSE: 250 (UNITS UNSPECIFIED)??FREQUENCY: 1 IN THE MORNING, 1 IN AFTERNOON AND 2 AT NIGHT.
     Dates: start: 2006
  3. IMBRUVICA [Suspect]
     Active Substance: IBRUTINIB
     Indication: CHRONIC LYMPHOCYTIC LEUKAEMIA
     Route: 048
     Dates: start: 20150922
  4. IMBRUVICA [Suspect]
     Active Substance: IBRUTINIB
     Indication: CHRONIC LYMPHOCYTIC LEUKAEMIA
     Route: 048

REACTIONS (3)
  - Bronchitis [Not Recovered/Not Resolved]
  - Thyroid mass [Not Recovered/Not Resolved]
  - Generalised resistance to thyroid hormone [Not Recovered/Not Resolved]

NARRATIVE: CASE EVENT DATE: 20160301
